FAERS Safety Report 8248287-1 (Version None)
Quarter: 2012Q1

REPORT INFORMATION
  Report Type: 
  Country: None (occurrence: None)
  Receive Date: 20120330
  Receipt Date: 20120321
  Transmission Date: 20120608
  Serious: No
  Sender: FDA-Public Use
  Company Number: US-B.I. PHARMACEUTICALS,INC./RIDGEFIELD-2012-BP-03456BP

PATIENT
  Sex: Male
  Weight: 116.12 kg

DRUGS (6)
  1. PRADAXA [Suspect]
     Indication: ATRIAL FIBRILLATION
     Dosage: 300 MG
     Route: 048
     Dates: start: 20120221, end: 20120221
  2. DIGOXIN [Concomitant]
     Indication: ATRIAL FIBRILLATION
     Dosage: 0.25 MG
     Route: 048
     Dates: start: 20120203
  3. PRADAXA [Suspect]
     Dosage: 300 MG
     Route: 048
     Dates: start: 20120321, end: 20120322
  4. CARVEDILOL [Concomitant]
     Indication: ATRIAL FIBRILLATION
     Dosage: 6.25 MG
     Route: 048
     Dates: start: 20120203
  5. CARVEDILOL [Concomitant]
     Indication: CARDIOMYOPATHY
  6. LISINOPRIL [Concomitant]
     Indication: CARDIOMYOPATHY
     Dosage: 2.5 MG
     Route: 048
     Dates: start: 20120203

REACTIONS (1)
  - DYSPNOEA [None]
